FAERS Safety Report 16889423 (Version 2)
Quarter: 2019Q4

REPORT INFORMATION
  Report Type: Report from Study
  Country: None (occurrence: CO)
  Receive Date: 20191007
  Receipt Date: 20191030
  Transmission Date: 20200122
  Serious: Yes (Other)
  Sender: FDA-Public Use
  Company Number: CO-ABBVIE-19K-036-2952774-00

PATIENT
  Age: 81 Year
  Sex: Female
  Weight: 40 kg

DRUGS (2)
  1. HUMIRA [Suspect]
     Active Substance: ADALIMUMAB
     Indication: RHEUMATOID ARTHRITIS
     Route: 058
     Dates: start: 20111125
  2. HUMIRA [Suspect]
     Active Substance: ADALIMUMAB
     Indication: RHEUMATOID ARTHRITIS
     Route: 058
     Dates: end: 20190915

REACTIONS (12)
  - Rheumatoid arthritis [Recovering/Resolving]
  - Herpes virus infection [Recovering/Resolving]
  - Herpes zoster [Recovering/Resolving]
  - Anxiety [Unknown]
  - Facial pain [Not Recovered/Not Resolved]
  - Paralysis [Recovering/Resolving]
  - Amnesia [Unknown]
  - Ear pain [Not Recovered/Not Resolved]
  - Headache [Unknown]
  - Deformity [Recovering/Resolving]
  - Eyelid ptosis [Recovering/Resolving]
  - Inflammation [Recovering/Resolving]

NARRATIVE: CASE EVENT DATE: 201909
